FAERS Safety Report 5129204-X (Version None)
Quarter: 2006Q3

REPORT INFORMATION
  Report Type: 
  Country: None (occurrence: None)
  Receive Date: 20060929
  Receipt Date: 20060920
  Transmission Date: 20061208
  Serious: No
  Sender: FDA-Public Use
  Company Number: 200610729

PATIENT
  Age: 62 Year
  Sex: Female
  Weight: 97 kg

DRUGS (21)
  1. VIVAGLOBIN [Suspect]
     Indication: HYPOGAMMAGLOBULINAEMIA
     Dosage: 10 ML DAILY SC
     Route: 058
  2. FLUCTINE [Concomitant]
  3. L-THYROXIN [Concomitant]
  4. NEXIUM [Concomitant]
  5. KALINOR [Concomitant]
  6. MOXONIDIN [Concomitant]
  7. CORVATON [Concomitant]
  8. TOREM [Concomitant]
  9. AMLODIPINE [Concomitant]
  10. SIMVASTATIN [Concomitant]
  11. KARVEA [Concomitant]
  12. IBUPROFEN AL [Concomitant]
  13. THEOPHYLLINE [Concomitant]
  14. DUSPATAL [Concomitant]
  15. NEBILET [Concomitant]
  16. PLAVIX [Concomitant]
  17. NITROLINGUAL [Concomitant]
  18. OXIS TURBUH [Concomitant]
  19. PULMICORT [Concomitant]
  20. BERODUAL [Concomitant]
  21. INSIDON [Concomitant]

REACTIONS (10)
  - ASTHENIA [None]
  - CEREBROVASCULAR ACCIDENT [None]
  - FLUID RETENTION [None]
  - HYPERHIDROSIS [None]
  - HYPERTENSION [None]
  - MALAISE [None]
  - NIGHT SWEATS [None]
  - OEDEMA PERIPHERAL [None]
  - SWELLING FACE [None]
  - UPPER LIMB FRACTURE [None]
